FAERS Safety Report 5794264-X (Version None)
Quarter: 2008Q2

REPORT INFORMATION
  Report Type: 
  Country: None (occurrence: None)
  Receive Date: 20080627
  Receipt Date: 20080625
  Transmission Date: 20081010
  Serious: Yes (Hospitalization)
  Sender: FDA-Public Use
  Company Number: US-GILEAD-2008-0017054

PATIENT
  Sex: Female
  Weight: 79.45 kg

DRUGS (12)
  1. LETAIRIS [Suspect]
     Indication: PULMONARY HYPERTENSION
     Route: 048
     Dates: start: 20080529, end: 20080604
  2. LETAIRIS [Suspect]
     Route: 048
     Dates: start: 20080523, end: 20080528
  3. REMODULIN [Concomitant]
     Indication: PULMONARY HYPERTENSION
     Route: 042
     Dates: start: 20070209, end: 20080613
  4. COUMADIN [Concomitant]
     Route: 048
  5. AZATHIOPRINE [Concomitant]
     Route: 048
  6. PREDNISONE [Concomitant]
     Route: 048
  7. DIGOXIN [Concomitant]
     Route: 048
  8. FUROSEMIDE [Concomitant]
     Route: 048
  9. PREVACID [Concomitant]
     Route: 048
  10. POTASSIUM CHLORIDE [Concomitant]
     Route: 048
  11. FERROUS SULFATE TAB [Concomitant]
     Route: 048
  12. CALTRATE D [Concomitant]
     Route: 048

REACTIONS (3)
  - COR PULMONALE [None]
  - LIVER DISORDER [None]
  - PULMONARY HYPERTENSION [None]
